FAERS Safety Report 7734631-8 (Version None)
Quarter: 2011Q3

REPORT INFORMATION
  Report Type: 
  Country: None (occurrence: None)
  Receive Date: 20110907
  Receipt Date: 20110906
  Transmission Date: 20111222
  Serious: No
  Sender: FDA-Public Use
  Company Number: US-PFIZER INC-2011208368

PATIENT

DRUGS (2)
  1. LIPITOR [Suspect]
     Dosage: ^20 MIL^
  2. LIPITOR [Suspect]
     Dosage: ^40 MIL^

REACTIONS (1)
  - INSOMNIA [None]
